FAERS Safety Report 4451646-6 (Version None)
Quarter: 2004Q3

REPORT INFORMATION
  Report Type: 
  Country: None (occurrence: None)
  Receive Date: 20040915
  Receipt Date: 20040901
  Transmission Date: 20050211
  Serious: No
  Sender: FDA-Public Use
  Company Number: 04P-062-0272237-00

PATIENT
  Age: 61 Year
  Sex: Female

DRUGS (4)
  1. HUMIRA [Suspect]
     Indication: RHEUMATOID ARTHRITIS
     Dosage: 40 MG, 1 IN 2 WK, SUBCUTANEOUS
     Route: 058
     Dates: start: 20031201, end: 20040825
  2. METOPROLOL SUCCINATE [Concomitant]
  3. DIGITOXIN [Concomitant]
  4. PHENPROCOUMON [Concomitant]

REACTIONS (3)
  - APHASIA [None]
  - DISORIENTATION [None]
  - MEMORY IMPAIRMENT [None]
